FAERS Safety Report 5092437-5 (Version None)
Quarter: 2006Q3

REPORT INFORMATION
  Report Type: 
  Country: None (occurrence: None)
  Receive Date: 20060825
  Receipt Date: 20060811
  Transmission Date: 20061208
  Serious: Yes (Hospitalization)
  Sender: FDA-Public Use
  Company Number: 2006PV019290

PATIENT
  Age: 68 Year
  Sex: Female

DRUGS (8)
  1. BYETTA [Suspect]
     Indication: DIABETES MELLITUS
     Dosage: 10 MCG
     Dates: start: 20051027
  2. ACTOS [Concomitant]
  3. PRANDIN [Concomitant]
  4. CLINIDINE [Concomitant]
  5. VERAPAMIL [Concomitant]
  6. CAPTOPRIL [Concomitant]
  7. VITAMIN E [Concomitant]
  8. MULTIVITAMIN [Concomitant]

REACTIONS (1)
  - BRAIN NEOPLASM [None]
